FAERS Safety Report 8214305-X (Version None)
Quarter: 2012Q1

REPORT INFORMATION
  Report Type: 
  Country: None (occurrence: None)
  Receive Date: 20120316
  Receipt Date: 20120309
  Transmission Date: 20120608
  Serious: Yes (Hospitalization)
  Sender: FDA-Public Use
  Company Number: US-BAYER-2011-059174

PATIENT
  Age: 17 Year
  Sex: Female
  Weight: 60.771 kg

DRUGS (4)
  1. YASMIN [Suspect]
     Indication: CONTRACEPTION
     Dosage: UNK
     Dates: start: 20080418, end: 20080630
  2. AUGMENTIN '125' [Concomitant]
     Indication: PHARYNGITIS STREPTOCOCCAL
     Dosage: 600 MG, UNK
     Route: 048
     Dates: start: 20080916, end: 20080926
  3. NAPROXEN [Concomitant]
     Indication: PAIN
     Dosage: 50 MG, PRN
     Route: 048
  4. DROSPIRENONE AND ETHINYL ESTRADIOL [Suspect]
     Indication: CONTRACEPTION
     Dosage: UNK
     Dates: start: 20080724, end: 20081006

REACTIONS (9)
  - GENERAL PHYSICAL HEALTH DETERIORATION [None]
  - OEDEMA PERIPHERAL [None]
  - PULMONARY EMBOLISM [None]
  - EMOTIONAL DISTRESS [None]
  - ANXIETY [None]
  - ASTHENIA [None]
  - DYSPNOEA [None]
  - DEEP VEIN THROMBOSIS [None]
  - PAIN IN EXTREMITY [None]
